FAERS Safety Report 6304237-6 (Version None)
Quarter: 2009Q3

REPORT INFORMATION
  Report Type: 
  Country: None (occurrence: None)
  Receive Date: 20090811
  Receipt Date: 20090804
  Transmission Date: 20100115
  Serious: Yes (Other)
  Sender: FDA-Public Use
  Company Number: US-RANBAXY-2009US-26103

PATIENT

DRUGS (3)
  1. ISOTRETINOIN [Suspect]
     Indication: ACNE
     Dosage: 10 MG, QD
     Route: 048
     Dates: start: 20081101
  2. ISOTRETINOIN [Suspect]
     Dosage: 120 MG, QD
     Route: 048
     Dates: end: 20090301
  3. ISOTRETINOIN [Suspect]
     Dosage: 40 MG, BID
     Route: 048
     Dates: start: 20090301, end: 20090401

REACTIONS (11)
  - ABNORMAL DREAMS [None]
  - ANGER [None]
  - ANXIETY [None]
  - ASTHENIA [None]
  - DECREASED INTEREST [None]
  - FEAR OF DEATH [None]
  - HYPERSOMNIA [None]
  - INITIAL INSOMNIA [None]
  - IRRITABILITY [None]
  - SELF-INJURIOUS IDEATION [None]
  - VIOLENCE-RELATED SYMPTOM [None]
